FAERS Safety Report 11789633 (Version 1)
Quarter: 2015Q4

REPORT INFORMATION
  Report Type: Spontaneous
  Country: EG (occurrence: EG)
  Receive Date: 20151201
  Receipt Date: 20151201
  Transmission Date: 20160305
  Serious: Yes (Death, Other)
  Sender: FDA-Public Use
  Company Number: EG-SA-2015SA198469

PATIENT
  Age: 7 Year
  Sex: Female
  Weight: 13 kg

DRUGS (1)
  1. CEREZYME [Suspect]
     Active Substance: IMIGLUCERASE
     Indication: GAUCHER^S DISEASE TYPE III
     Route: 042

REACTIONS (6)
  - Respiratory distress [Unknown]
  - Pneumonia [Fatal]
  - Cardio-respiratory arrest [Fatal]
  - Unresponsive to stimuli [Unknown]
  - Status epilepticus [Fatal]
  - Respiratory acidosis [Unknown]

NARRATIVE: CASE EVENT DATE: 201511
